FAERS Safety Report 23462348 (Version 3)
Quarter: 2024Q1

REPORT INFORMATION
  Report Type: Spontaneous
  Country: SI (occurrence: SI)
  Receive Date: 20240131
  Receipt Date: 20240226
  Transmission Date: 20240410
  Serious: Yes (Hospitalization)
  Sender: FDA-Public Use
  Company Number: SI-STADA-01184930

PATIENT
  Age: 67 Year
  Sex: Female

DRUGS (14)
  1. CARIPRAZINE [Interacting]
     Active Substance: CARIPRAZINE
     Indication: Schizophrenia
     Route: 065
     Dates: start: 20230228, end: 20230303
  2. CARIPRAZINE [Interacting]
     Active Substance: CARIPRAZINE
     Indication: Schizophrenia
     Dosage: INCREASED TO 3 MG
     Route: 065
     Dates: start: 20230303, end: 20230307
  3. CARIPRAZINE [Interacting]
     Active Substance: CARIPRAZINE
     Indication: Schizophrenia
     Dosage: INCREASED TO 4.5 MG
     Route: 065
     Dates: start: 20230307, end: 20230312
  4. OLANZAPINE [Interacting]
     Active Substance: OLANZAPINE
     Indication: Insomnia
     Dosage: STARTING AT 5 MG ON THE FIRST DAY AND INCREASING TO 10 MG THE FOLLOWING DAY
     Route: 048
  5. OLANZAPINE [Interacting]
     Active Substance: OLANZAPINE
     Indication: Insomnia
     Dosage: RAISED TO 20 MG
     Route: 048
  6. OLANZAPINE [Interacting]
     Active Substance: OLANZAPINE
     Indication: Insomnia
     Dosage: INCREASED TO 15 MG
     Route: 048
  7. OLANZAPINE [Interacting]
     Active Substance: OLANZAPINE
     Indication: Insomnia
     Dosage: 5 MG STOPPED AT THE BEGINNING OF 2023
     Route: 048
     Dates: end: 2023
  8. OLANZAPINE [Interacting]
     Active Substance: OLANZAPINE
     Indication: Insomnia
     Dosage: CROSS-TAPERED
     Route: 048
  9. RISPERIDONE [Concomitant]
     Active Substance: RISPERIDONE
     Indication: Schizophrenia
     Route: 065
  10. RISPERIDONE [Concomitant]
     Active Substance: RISPERIDONE
     Indication: Schizophrenia
     Dosage: INITIAL DOSE NOT STATED
     Route: 065
     Dates: end: 2022
  11. LORAZEPAM [Concomitant]
     Active Substance: LORAZEPAM
     Indication: Anxiety
     Dosage: THREE DAILY DOSES, TITRATED UP TO 2 MG/DAY
     Route: 048
  12. LORAZEPAM [Concomitant]
     Active Substance: LORAZEPAM
     Indication: Anxiety
     Dosage: INCREASED TO 3MG/DAY
     Route: 048
  13. LORAZEPAM [Concomitant]
     Active Substance: LORAZEPAM
     Indication: Anxiety
     Route: 048
     Dates: start: 20230221, end: 20230310
  14. ESCITALOPRAM [Concomitant]
     Active Substance: ESCITALOPRAM OXALATE
     Indication: Schizophrenia
     Route: 065

REACTIONS (2)
  - Hypersexuality [Recovered/Resolved]
  - Drug interaction [Recovered/Resolved]

NARRATIVE: CASE EVENT DATE: 20230301
